FAERS Safety Report 6593220-1 (Version None)
Quarter: 2010Q1

REPORT INFORMATION
  Report Type: 
  Country: None (occurrence: None)
  Receive Date: 20100212
  Receipt Date: 20100128
  Transmission Date: 20100710
  Serious: Yes (Death)
  Sender: FDA-Public Use
  Company Number: 008702

PATIENT
  Age: 80 Year
  Sex: Male

DRUGS (5)
  1. PLETAL [Suspect]
     Dosage: 100 MG, QD, ORAL
     Route: 048
     Dates: start: 20100121, end: 20100122
  2. AVOLVE (DUTASTERIDE) CAPSULE [Suspect]
     Indication: BENIGN PROSTATIC HYPERPLASIA
     Dosage: 0.5 MG, DAILY DOSE ORAL
     Route: 048
     Dates: end: 20100122
  3. EVIPROSTAT (PIPSISEWA ESTRACT-JAPANESE AASPEN EXTRACT COMBIED DRUG) TA [Suspect]
     Indication: BENIGN PROSTATIC HYPERPLASIA
     Dosage: ORAL
     Route: 048
     Dates: start: 20100121, end: 20100122
  4. NORVASC [Suspect]
     Dosage: 5 MG, QD, ORAL
     Route: 048
     Dates: start: 20100121, end: 20100121
  5. PANALDINE (TICLOPIDINE HYDROCHLORIDE); REGIMEN #1 [Suspect]
     Dosage: 100 MG, QD, ORAL
     Route: 048
     Dates: start: 20100121, end: 20100122

REACTIONS (3)
  - BLOOD PRESSURE DECREASED [None]
  - CARDIO-RESPIRATORY ARREST [None]
  - WRONG DRUG ADMINISTERED [None]
